FAERS Safety Report 4974952-5 (Version None)
Quarter: 2006Q2

REPORT INFORMATION
  Report Type: 
  Country: None (occurrence: None)
  Receive Date: 20060418
  Receipt Date: 20060213
  Transmission Date: 20061013
  Serious: No
  Sender: FDA-Public Use
  Company Number: GBWYE390614FEB06

PATIENT
  Sex: Female

DRUGS (5)
  1. ENBREL [Suspect]
     Indication: RHEUMATOID ARTHRITIS
     Route: 058
     Dates: start: 20051230
  2. DEXTROPROPOXYPHENE HYDROCHLORIDE/PARACETAMOL [Concomitant]
  3. UNSPECIFIED MEDICATION [Concomitant]
  4. SULFASALAZINE [Concomitant]
  5. ARTHROTEC [Concomitant]

REACTIONS (2)
  - METRORRHAGIA [None]
  - VAGINAL HAEMORRHAGE [None]
